FAERS Safety Report 9060729 (Version 1)
Quarter: 2013Q1

REPORT INFORMATION
  Report Type: Spontaneous
  Country: IT (occurrence: IT)
  Receive Date: 20130204
  Receipt Date: 20130204
  Transmission Date: 20140127
  Serious: Yes (Other)
  Sender: FDA-Public Use
  Company Number: IT-TEVA-382923ISR

PATIENT
  Age: 90 None
  Sex: Female

DRUGS (4)
  1. LORAZEPAM [Suspect]
     Dosage: 2.5 MILLIGRAM DAILY;
     Route: 048
     Dates: start: 20111208, end: 20121207
  2. MIRTAZAPINA [Suspect]
     Dosage: 30 MILLIGRAM DAILY;
     Route: 048
     Dates: start: 20111208
  3. TRITTICO [Suspect]
     Dosage: 75 MILLIGRAM DAILY;
     Route: 048
     Dates: start: 20111208
  4. STILNOX [Suspect]
     Dosage: 10 MILLIGRAM DAILY;
     Route: 048
     Dates: start: 20121205, end: 20121206

REACTIONS (2)
  - Confusional state [Recovering/Resolving]
  - Psychomotor hyperactivity [Recovering/Resolving]
